FAERS Safety Report 4277049-5 (Version None)
Quarter: 2004Q1

REPORT INFORMATION
  Report Type: 
  Country: None (occurrence: None)
  Receive Date: 20040120
  Receipt Date: 20040108
  Transmission Date: 20041129
  Serious: Yes (Disabling)
  Sender: FDA-Public Use
  Company Number: 2004UW00474

PATIENT
  Sex: Female

DRUGS (1)
  1. NOLVADEX [Suspect]
     Dates: start: 20031101

REACTIONS (3)
  - ABDOMINAL PAIN [None]
  - ACNE [None]
  - PAIN IN EXTREMITY [None]
